FAERS Safety Report 26151235 (Version 1)
Quarter: 2025Q4

REPORT INFORMATION
  Report Type: Spontaneous
  Country: CN (occurrence: CN)
  Receive Date: 20251212
  Receipt Date: 20251212
  Transmission Date: 20260118
  Serious: Yes (Hospitalization)
  Sender: COSETTE PHARMACEUTICALS INC
  Company Number: CN-SA-2025SA360444

PATIENT
  Age: 33 Year
  Sex: Female
  Weight: 50 kg

DRUGS (4)
  1. AMBIEN [Suspect]
     Active Substance: ZOLPIDEM TARTRATE
     Indication: Intentional self-injury
     Route: 048
     Dates: start: 20251113, end: 20251113
  2. ZOPICLONE [Suspect]
     Active Substance: ZOPICLONE
     Indication: Intentional self-injury
     Route: 048
     Dates: start: 20251113, end: 20251113
  3. NORFLOXACIN [Suspect]
     Active Substance: NORFLOXACIN
     Indication: Intentional self-injury
     Route: 048
     Dates: start: 20251113, end: 20251113
  4. LORAZEPAM [Suspect]
     Active Substance: LORAZEPAM
     Indication: Intentional self-injury
     Route: 048
     Dates: start: 20251113, end: 20251113

REACTIONS (16)
  - Toxicity to various agents [Unknown]
  - Sinus rhythm [Unknown]
  - White blood cell count increased [Unknown]
  - Neutrophil count increased [Unknown]
  - Lymphocyte count increased [Unknown]
  - Carbon dioxide decreased [Unknown]
  - Oxygen saturation decreased [Unknown]
  - Blood thromboplastin decreased [Unknown]
  - Blood albumin decreased [Unknown]
  - Blood bilirubin decreased [Unknown]
  - Amylase increased [Unknown]
  - Blood magnesium decreased [Unknown]
  - Condition aggravated [Unknown]
  - Asthenia [Unknown]
  - Dizziness [Unknown]
  - Intentional overdose [Unknown]

NARRATIVE: CASE EVENT DATE: 20251113
